FAERS Safety Report 5521803-6 (Version None)
Quarter: 2007Q4

REPORT INFORMATION
  Report Type: 
  Country: None (occurrence: None)
  Receive Date: 20071120
  Receipt Date: 20071114
  Transmission Date: 20080405
  Serious: Yes (Death)
  Sender: FDA-Public Use
  Company Number: JP-JNJFOC-20071105506

PATIENT
  Age: 62 Year
  Sex: Male
  Weight: 71 kg

DRUGS (7)
  1. RISPERDAL [Suspect]
     Route: 048
  2. RISPERDAL [Suspect]
     Indication: SCHIZOPHRENIA
     Route: 048
  3. LOSARTAN POTASSIUM [Concomitant]
     Indication: HYPERTENSION
  4. NITRAZEPAM [Concomitant]
  5. MAGNESIUM OXIDE [Concomitant]
     Indication: PROPHYLAXIS
  6. TRIAZOLAM [Concomitant]
  7. HALOPERIDOL [Concomitant]

REACTIONS (1)
  - MYOCARDIAL INFARCTION [None]
